FAERS Safety Report 19314025 (Version 1)
Quarter: 2021Q2

REPORT INFORMATION
  Report Type: Spontaneous
  Country: US (occurrence: US)
  Receive Date: 20210527
  Receipt Date: 20210527
  Transmission Date: 20210717
  Serious: Yes (Other)
  Sender: FDA-Public Use
  Company Number: US-BAYER-2021-145017

PATIENT
  Age: 68 Year
  Sex: Female

DRUGS (3)
  1. TICAGRELOR. [Suspect]
     Active Substance: TICAGRELOR
  2. ACETYLSALICYLIC ACID [Suspect]
     Active Substance: ASPIRIN
  3. WARFARIN [Suspect]
     Active Substance: WARFARIN

REACTIONS (2)
  - Cerebral infarction [None]
  - Haemorrhagic transformation stroke [None]
